FAERS Safety Report 13737251 (Version 1)
Quarter: 2017Q3

REPORT INFORMATION
  Report Type: Spontaneous
  Country: DE (occurrence: DE)
  Receive Date: 20170710
  Receipt Date: 20170710
  Transmission Date: 20171127
  Serious: Yes (Other)
  Sender: FDA-Public Use
  Company Number: DE-PFIZER INC-2017289924

PATIENT
  Age: 30 Year
  Sex: Female
  Weight: 87 kg

DRUGS (5)
  1. OLANZAPINE. [Suspect]
     Active Substance: OLANZAPINE
     Indication: ANXIETY DISORDER
     Dosage: 5 MG, 1X/DAY (1ST TRIMESTER, 0-39TH GESTATIONAL WEEK)
     Route: 048
     Dates: start: 20160607, end: 20170204
  2. FOLIO FORTE [Concomitant]
     Active Substance: FOLIC ACID\VITAMINS
     Indication: PROPHYLAXIS OF NEURAL TUBE DEFECT
     Dosage: 8.8 MG, 1X/DAY (1ST TRIMESTER, 0-39TH GESTATIONAL WEEK)
     Route: 048
     Dates: start: 20160507, end: 20170204
  3. VENLAFAXINE HCL [Suspect]
     Active Substance: VENLAFAXINE HYDROCHLORIDE
     Indication: DEPRESSION
     Dosage: 75 MG, 1X/DAY (1ST TRIMESTER, 0-39TH GESTATIONAL WEEK)
     Route: 048
     Dates: start: 20160507, end: 20170204
  4. L-THYROX [Concomitant]
     Active Substance: LEVOTHYROXINE SODIUM
     Indication: HYPOTHYROIDISM
     Dosage: 75 UG, 1X/DAY (3RD TRIMESTER, 27.3 - 39TH GESTATIONAL WEEK)
     Route: 048
  5. INFLUENZA VACCINE [Concomitant]
     Active Substance: INFLUENZA VIRUS VACCINE
     Indication: IMMUNISATION
     Dosage: 2 TRIMESTER 23. - 23. GESTATIONAL WEEK
     Route: 030

REACTIONS (1)
  - Gestational diabetes [Recovered/Resolved]
